FAERS Safety Report 4330170-5 (Version None)
Quarter: 2004Q1

REPORT INFORMATION
  Report Type: 
  Country: None (occurrence: None)
  Receive Date: 20040329
  Receipt Date: 20040127
  Transmission Date: 20041129
  Serious: Yes (Hospitalization)
  Sender: FDA-Public Use
  Company Number: 2004AP00100

PATIENT
  Age: 81 Year
  Sex: Male
  Weight: 65 kg

DRUGS (5)
  1. ACCOLATE [Suspect]
     Indication: ASTHMA
     Dosage: 40 MG DAILY PO
     Route: 048
     Dates: start: 20030107, end: 20040104
  2. UNICON [Concomitant]
  3. SPIROPENT [Concomitant]
  4. DIPYRIDAMOLE [Concomitant]
  5. ALDECIN [Concomitant]

REACTIONS (7)
  - ALANINE AMINOTRANSFERASE INCREASED [None]
  - ANOREXIA [None]
  - ASPARTATE AMINOTRANSFERASE INCREASED [None]
  - BILE DUCT STONE [None]
  - CHOLANGITIS [None]
  - HEPATIC FUNCTION ABNORMAL [None]
  - WHITE BLOOD CELL COUNT INCREASED [None]
